FAERS Safety Report 9937291 (Version 1)
Quarter: 2014Q1

REPORT INFORMATION
  Report Type: Spontaneous
  Country: US (occurrence: US)
  Receive Date: 20140302
  Receipt Date: 20140302
  Transmission Date: 20141002
  Serious: Yes (Other)
  Sender: FDA-Public Use
  Company Number: US-TEVA-465465USA

PATIENT
  Age: 59 Year
  Sex: Female
  Weight: 74.83 kg

DRUGS (3)
  1. CETIRIZINE W/PSEUDOEPHEDRINE [Suspect]
     Indication: NASAL CONGESTION
     Route: 048
     Dates: start: 20140220, end: 20140220
  2. CETIRIZINE W/PSEUDOEPHEDRINE [Suspect]
     Indication: HYPERSENSITIVITY
  3. ANTIHYPERTENSIVES [Concomitant]
     Dates: start: 2004

REACTIONS (1)
  - Blood pressure decreased [Recovered/Resolved]
